FAERS Safety Report 9693055 (Version 1)
Quarter: 2013Q4

REPORT INFORMATION
  Report Type: Spontaneous
  Country: GB (occurrence: None)
  Receive Date: 20131114
  Receipt Date: 20131114
  Transmission Date: 20140711
  Serious: Yes (Disabling)
  Sender: FDA-Public Use
  Company Number: 2013AP009538

PATIENT
  Age: 75 Year
  Sex: Female

DRUGS (6)
  1. ALENDRONATE (ALENDRONATE SODIUM) [Suspect]
     Indication: OSTEOPOROSIS
     Dosage: 70 MG; UNKNOWN;PO;QW
     Route: 048
     Dates: start: 20091119, end: 20120518
  2. FELODIPINE (FELODIPINE) [Concomitant]
  3. PRAMIPEXOLE DIHYDROCHLORIDE (PRAMIPEXOLE DIHYDROCHLORIDE) [Concomitant]
  4. SALBUTAMOL (SALBUTAMOL) [Concomitant]
  5. SIMVASTATIN (SIMVASTATIN)? [Concomitant]
  6. TIOTROPIUM (TIOTROPIUM) [Concomitant]

REACTIONS (5)
  - Osteonecrosis of jaw [None]
  - Pain [None]
  - Aphagia [None]
  - Malnutrition [None]
  - Weight decreased [None]
